FAERS Safety Report 21410507 (Version 3)
Quarter: 2022Q4

REPORT INFORMATION
  Report Type: Report from Study
  Country: CH (occurrence: CH)
  Receive Date: 20221005
  Receipt Date: 20221014
  Transmission Date: 20230113
  Serious: Yes (Death, Life-Threatening)
  Sender: FDA-Public Use
  Company Number: CH-ABBVIE-4140544

PATIENT
  Age: 66 Year
  Sex: Male

DRUGS (2)
  1. CARBIDOPA\LEVODOPA [Suspect]
     Active Substance: CARBIDOPA\LEVODOPA
     Indication: Parkinson^s disease
     Dosage: MD: 4.7 ML, CRD: 1.7 ML/H,  ED: 1.0 ML, 16 HOURS THERAPY
     Route: 050
     Dates: start: 20211229, end: 20221003
  2. CARBIDOPA\LEVODOPA [Suspect]
     Active Substance: CARBIDOPA\LEVODOPA
     Route: 050
     Dates: start: 20140214

REACTIONS (5)
  - Hypophagia [Fatal]
  - Cardiac disorder [Fatal]
  - Death [Fatal]
  - Fluid intake reduced [Fatal]
  - Oedema [Fatal]

NARRATIVE: CASE EVENT DATE: 20220901
